FAERS Safety Report 9753001 (Version 2)
Quarter: 2014Q2

REPORT INFORMATION
  Report Type: Spontaneous
  Country: US (occurrence: US)
  Receive Date: 20131213
  Receipt Date: 20140602
  Transmission Date: 20141212
  Serious: Yes (Hospitalization)
  Sender: FDA-Public Use
  Company Number: US-B.I. PHARMACEUTICALS,INC./RIDGEFIELD-2013-BI-41777BP

PATIENT
  Sex: Male
  Weight: 90.72 kg

DRUGS (8)
  1. PRADAXA [Suspect]
     Indication: ATRIAL FIBRILLATION
     Route: 065
     Dates: start: 20111110, end: 20120104
  2. LANOXIN [Concomitant]
     Dosage: 25 U
     Route: 065
  3. ENALAPRIL [Concomitant]
     Dosage: 20 MG
     Route: 065
     Dates: start: 201108
  4. LASIX [Concomitant]
     Dosage: DOSE PER APPLICATION AND DAILY DOSE 30
     Route: 065
     Dates: start: 201108
  5. METAXALONE [Concomitant]
     Dosage: DOSE PER APPLICATION AND DAILY DOSE 2.5
     Route: 065
     Dates: start: 201108
  6. PROTONIX [Concomitant]
     Dosage: DOSE PER APPLICATION AND DAILY DOSE 40
     Route: 065
     Dates: start: 201108
  7. SIMVASTATIN [Concomitant]
     Dosage: DOSE PER APPLICATION AND DAILY DOSE 20
     Route: 065
  8. SPIRONOLACTONE [Concomitant]
     Dosage: DOSE PER APPLICATION AND DAILY DOSE 25
     Route: 065
     Dates: start: 201108

REACTIONS (9)
  - Epistaxis [Unknown]
  - Haematuria [Unknown]
  - Gastrointestinal haemorrhage [Unknown]
  - Mouth haemorrhage [Unknown]
  - Ocular hyperaemia [Unknown]
  - Immune thrombocytopenic purpura [Unknown]
  - Anaemia [Unknown]
  - Coagulopathy [Unknown]
  - Chronic obstructive pulmonary disease [Unknown]
